FAERS Safety Report 8490870-2 (Version None)
Quarter: 2012Q2

REPORT INFORMATION
  Report Type: 
  Country: None (occurrence: None)
  Receive Date: 20120629
  Receipt Date: 20120629
  Transmission Date: 20120825
  Serious: Yes (Other)
  Sender: FDA-Public Use
  Company Number: None

PATIENT
  Sex: Female
  Weight: 81.6475 kg

DRUGS (2)
  1. NEXIUM [Suspect]
     Indication: OESOPHAGITIS
     Dosage: 40 MG 1 O D 1 O.D. ORAL
     Route: 048
     Dates: start: 20120228, end: 20120324
  2. VANCOCIN HYDROCHLORIDE [Suspect]
     Indication: BACTERIAL INFECTION
     Dosage: 125 MG Q.I.D. 1 Q.I.D. ORAL
     Route: 048
     Dates: start: 20120330, end: 20120410

REACTIONS (3)
  - VERTIGO [None]
  - DIZZINESS [None]
  - DIARRHOEA HAEMORRHAGIC [None]
